FAERS Safety Report 8473870-8 (Version None)
Quarter: 2012Q2

REPORT INFORMATION
  Report Type: 
  Country: None (occurrence: None)
  Receive Date: 20120628
  Receipt Date: 20120105
  Transmission Date: 20120825
  Serious: Yes (Hospitalization)
  Sender: FDA-Public Use
  Company Number: US-MYLANLABS-2012S1000331

PATIENT
  Age: 48 Year
  Sex: Female

DRUGS (2)
  1. CLOZAPINE [Suspect]
     Indication: PSYCHOTIC DISORDER
     Route: 048
     Dates: start: 20111129, end: 20111211
  2. CLOZAPINE [Suspect]
     Route: 048
     Dates: start: 20111129, end: 20111211

REACTIONS (2)
  - NEUROLEPTIC MALIGNANT SYNDROME [None]
  - GRANULOCYTOPENIA [None]
